FAERS Safety Report 20722404 (Version 5)
Quarter: 2022Q2

REPORT INFORMATION
  Report Type: Report from Study
  Country: US (occurrence: US)
  Receive Date: 20220418
  Receipt Date: 20220531
  Transmission Date: 20220720
  Serious: Yes (Death, Life-Threatening, Hospitalization)
  Sender: FDA-Public Use
  Company Number: US-ABBVIE-22P-163-4350567-00

PATIENT
  Age: 65 Year
  Sex: Male
  Weight: 87.4 kg

DRUGS (20)
  1. LEMZOPARLIMAB [Suspect]
     Active Substance: LEMZOPARLIMAB
     Indication: Acute myeloid leukaemia
     Dosage: ON DAYS 1, 8, 15, AND 22 OF A 28-DAY CYCLE.
     Route: 042
     Dates: start: 20220311, end: 20220408
  2. VENETOCLAX [Suspect]
     Active Substance: VENETOCLAX
     Indication: Acute myeloid leukaemia
     Dosage: DURING EACH 28-DAY TREATMENT CYCLE
     Route: 048
     Dates: start: 20220304, end: 20220304
  3. VENETOCLAX [Suspect]
     Active Substance: VENETOCLAX
     Dosage: DURING EACH 28-DAY TREATMENT CYCLE
     Route: 048
     Dates: start: 20220305, end: 20220305
  4. VENETOCLAX [Suspect]
     Active Substance: VENETOCLAX
     Dosage: DURING EACH 28-DAY TREATMENT CYCLE
     Route: 048
     Dates: start: 20220306, end: 20220310
  5. VENETOCLAX [Suspect]
     Active Substance: VENETOCLAX
     Dosage: DURING EACH 28-DAY TREATMENT CYCLE
     Route: 048
     Dates: start: 20220311, end: 20220409
  6. AZACITIDINE [Suspect]
     Active Substance: AZACITIDINE
     Indication: Acute myeloid leukaemia
     Dosage: FOR 7 DAYS WITHIN THE FIRST 9 CALENDAR DAYS OF EACH 28-DAY CYCLE
     Route: 042
     Dates: start: 20220304, end: 20220409
  7. ALBUTEROL SULFATE [Concomitant]
     Active Substance: ALBUTEROL SULFATE
     Indication: Wheezing
     Route: 055
     Dates: start: 20200805
  8. ALBUTEROL SULFATE [Concomitant]
     Active Substance: ALBUTEROL SULFATE
     Indication: Dyspnoea
  9. AMLODIPINE BESYLATE [Concomitant]
     Active Substance: AMLODIPINE BESYLATE
     Indication: Hypertension
     Route: 048
     Dates: start: 20190806
  10. CHOLECALCIFEROL [Concomitant]
     Active Substance: CHOLECALCIFEROL
     Indication: Vitamin supplementation
     Route: 048
     Dates: start: 20180703, end: 20220404
  11. METOPROLOL SUCCINATE [Concomitant]
     Active Substance: METOPROLOL SUCCINATE
     Indication: Hypertension
     Route: 048
     Dates: start: 20190919
  12. PSYLLIUM SEEDS [Concomitant]
     Indication: Constipation
     Dosage: 1 PACK
     Route: 048
     Dates: start: 20200728
  13. VIAGRA [Concomitant]
     Active Substance: SILDENAFIL CITRATE
     Indication: Erectile dysfunction
     Route: 048
     Dates: start: 20200730, end: 20220404
  14. VALACYCLOVIR [Concomitant]
     Active Substance: VALACYCLOVIR HYDROCHLORIDE
     Indication: Anti-infective therapy
     Route: 048
     Dates: start: 20220302
  15. PROTONIX [Concomitant]
     Active Substance: PANTOPRAZOLE SODIUM
     Indication: Rectal haemorrhage
     Route: 048
     Dates: start: 20220320, end: 20220321
  16. PROTONIX [Concomitant]
     Active Substance: PANTOPRAZOLE SODIUM
     Route: 042
     Dates: start: 20220321, end: 20220321
  17. PROTONIX [Concomitant]
     Active Substance: PANTOPRAZOLE SODIUM
     Route: 042
     Dates: start: 20220322, end: 20220328
  18. PROTONIX [Concomitant]
     Active Substance: PANTOPRAZOLE SODIUM
     Route: 048
     Dates: start: 20220328, end: 20220331
  19. POTASSIUM CHLORIDE [Concomitant]
     Active Substance: POTASSIUM CHLORIDE
     Indication: Hypokalaemia
     Route: 048
     Dates: start: 20220323, end: 20220323
  20. POTASSIUM CHLORIDE [Concomitant]
     Active Substance: POTASSIUM CHLORIDE
     Route: 048
     Dates: start: 20220324, end: 20220331

REACTIONS (3)
  - Pneumonia [Fatal]
  - Pneumonia [Recovered/Resolved with Sequelae]
  - Pneumonia [Recovered/Resolved]

NARRATIVE: CASE EVENT DATE: 20220406
